FAERS Safety Report 8310282-1 (Version None)
Quarter: 2012Q2

REPORT INFORMATION
  Report Type: 
  Country: None (occurrence: None)
  Receive Date: 20120425
  Receipt Date: 20120417
  Transmission Date: 20120825
  Serious: Yes (Hospitalization)
  Sender: FDA-Public Use
  Company Number: US-BAYER-2012-038500

PATIENT
  Age: 31 Year
  Sex: Female

DRUGS (10)
  1. METFORMIN HCL [Concomitant]
     Dosage: 500 MG, UNK
     Route: 048
  2. PROPOFOL [Concomitant]
     Indication: CONVULSION
  3. YAZ [Suspect]
  4. YASMIN [Suspect]
  5. XANAX [Concomitant]
     Dosage: 0.5MG EVERY 12 HOURS PRN
  6. ZMAX SUSPENSION [Concomitant]
  7. FOSPHENYTOIN [Concomitant]
     Indication: CONVULSION
     Dosage: UNK
     Dates: start: 20090418
  8. PHENYTOIN [Concomitant]
     Indication: CONVULSION
  9. METHYLDOPA [Concomitant]
     Dosage: 250 MG, UNK
  10. ATIVAN [Concomitant]
     Indication: CONVULSION

REACTIONS (2)
  - CEREBRAL HAEMORRHAGE [None]
  - INTRACRANIAL VENOUS SINUS THROMBOSIS [None]
